FAERS Safety Report 16600021 (Version 1)
Quarter: 2019Q3

REPORT INFORMATION
  Report Type: Spontaneous
  Country: NZ (occurrence: NZ)
  Receive Date: 20190719
  Receipt Date: 20190719
  Transmission Date: 20191004
  Serious: Yes (Other)
  Sender: FDA-Public Use
  Company Number: NZ-ASTELLAS-2019US028856

PATIENT
  Sex: Female

DRUGS (1)
  1. ERLOTINIB [Suspect]
     Active Substance: ERLOTINIB
     Indication: NON-SMALL CELL LUNG CANCER
     Dosage: UNK, ONCE DAILY (A PILL A DAY)
     Route: 048

REACTIONS (11)
  - Dry skin [Unknown]
  - Hair disorder [Unknown]
  - Back pain [Unknown]
  - Alopecia [Unknown]
  - Rash [Unknown]
  - Hair texture abnormal [Unknown]
  - Loss of personal independence in daily activities [Unknown]
  - Pulmonary oedema [Unknown]
  - Respiratory disorder [Unknown]
  - EGFR gene mutation [Unknown]
  - Decreased appetite [Unknown]
